FAERS Safety Report 9638705 (Version 3)
Quarter: 2013Q4

REPORT INFORMATION
  Report Type: Report from Study
  Country: US (occurrence: US)
  Receive Date: 20131022
  Receipt Date: 20131107
  Transmission Date: 20140711
  Serious: Yes (Hospitalization)
  Sender: FDA-Public Use
  Company Number: US-DENDREON CORPORATION-2013PROUSA03234

PATIENT
  Age: 61 Year
  Sex: Male
  Weight: 127.89 kg

DRUGS (12)
  1. SIPULEUCEL-T [Suspect]
     Indication: PROSTATE CANCER METASTATIC
     Dosage: 250 ML, SINGLE
     Route: 042
     Dates: start: 20131007, end: 20131007
  2. ALENDRONATE SODIUM [Concomitant]
     Indication: ROUTINE HEALTH MAINTENANCE
     Dosage: 70 MG EVERY 7 DAYS FOR 12 WEEKS
     Route: 048
  3. AMLODIPINE BESYLATE [Concomitant]
     Indication: PROSTATE CANCER
     Dosage: 5 MG AS DIRECTED
     Route: 048
  4. TRELSTAR [Concomitant]
     Indication: PROSTATE CANCER
     Dosage: 11.25 MG AS DIRECTED
  5. METFORMIN [Concomitant]
     Indication: DIABETES MELLITUS
     Dosage: 500 MG, BID
     Route: 048
  6. ACETAMINOPHEN [Concomitant]
     Dosage: 1000 MG, QD
     Route: 048
  7. DEXAMETHASONE [Concomitant]
     Dosage: 4 MG, QID
     Route: 048
  8. DIPHENHYDRAMINE HCL [Concomitant]
     Dosage: 25 MG, QD
     Route: 048
  9. OMEPRAZOLE [Concomitant]
     Dosage: 40 MG, QD EVERY MORNING
     Route: 048
  10. CALCIUM/VITAMIN D [Concomitant]
     Dosage: 600 MG, BID
     Route: 048
  11. IBUPROFEN [Concomitant]
     Dosage: 800 MG, TID AS NEEDED
     Route: 048
  12. MULTIVITAMINS [Concomitant]
     Dosage: 1 DF, QD
     Route: 048

REACTIONS (1)
  - Spinal cord compression [Recovered/Resolved]
